FAERS Safety Report 8479603-3 (Version None)
Quarter: 2012Q2

REPORT INFORMATION
  Report Type: 
  Country: None (occurrence: None)
  Receive Date: 20120629
  Receipt Date: 20120618
  Transmission Date: 20120825
  Serious: Yes (Other)
  Sender: FDA-Public Use
  Company Number: JP-VERTEX PHARMACEUTICALS INC.-AE-2012-009272

PATIENT
  Age: 61 Year
  Sex: Male

DRUGS (3)
  1. RIBAVIRIN [Concomitant]
     Route: 048
  2. TELAVIC (TELAPREVIR) [Suspect]
     Dates: start: 20120509
  3. PEGINTERFERON ALFA-2B [Concomitant]
     Route: 058

REACTIONS (1)
  - RETINOPATHY [None]
